FAERS Safety Report 5786287-1 (Version None)
Quarter: 2008Q2

REPORT INFORMATION
  Report Type: 
  Country: None (occurrence: None)
  Receive Date: 20080624
  Receipt Date: 20070815
  Transmission Date: 20081010
  Serious: No
  Sender: FDA-Public Use
  Company Number: US-ASTRAZENECA-2007UW19673

PATIENT
  Age: 71 Year
  Sex: Male
  Weight: 113.4 kg

DRUGS (11)
  1. PULMICORT RESPULES [Suspect]
     Indication: EMPHYSEMA
     Route: 055
     Dates: start: 20070701
  2. DUONEB [Concomitant]
  3. ALTACE [Concomitant]
  4. NEXIUM [Concomitant]
     Route: 048
  5. LIPRAN [Concomitant]
  6. TOPROL-XL [Concomitant]
  7. LIPITOR [Concomitant]
  8. ALLOPURINOL [Concomitant]
  9. HYDROCHLOROTHIAZIDE [Concomitant]
  10. TRANZINE [Concomitant]
  11. ASPIRIN [Concomitant]

REACTIONS (2)
  - DRUG INEFFECTIVE [None]
  - INCREASED UPPER AIRWAY SECRETION [None]
